FAERS Safety Report 19846180 (Version 1)
Quarter: 2021Q3

REPORT INFORMATION
  Report Type: Spontaneous
  Country: DE (occurrence: DE)
  Receive Date: 20210917
  Receipt Date: 20210917
  Transmission Date: 20211014
  Serious: Yes (Death, Hospitalization)
  Sender: FDA-Public Use
  Company Number: DE-TEVA-2021-DE-1951976

PATIENT
  Age: 63 Year
  Sex: Male
  Weight: 71 kg

DRUGS (9)
  1. CYANOCOBALAMIN (VITAMIN B12) [Concomitant]
     Dosage: 2000 MILLIGRAM DAILY;  1?0?0?0
  2. SPIRONOLACTON [Suspect]
     Active Substance: SPIRONOLACTONE
     Dosage: 50 MILLIGRAM DAILY;  1?0?0?0
  3. METAMIZOL [Concomitant]
     Active Substance: METAMIZOLE SODIUM
     Dosage: 3 DOSAGE FORMS DAILY; 30 DROPS, 1?1?1?0
  4. LACTULOSE. [Concomitant]
     Active Substance: LACTULOSE
     Dosage: 1334 GRAM DAILY;  1?1?0?0
  5. PANTOPRAZOL [Suspect]
     Active Substance: PANTOPRAZOLE SODIUM
     Dosage: 80 MILLIGRAM DAILY;   1?0?1?0
  6. TORASEMID [Suspect]
     Active Substance: TORSEMIDE
     Dosage: 20 MILLIGRAM DAILY;  1?0?0?0
  7. ORNITHIN [Concomitant]
     Dosage: 6000 MILLIGRAM DAILY; 1?0?1?0
  8. RISPERIDON [Suspect]
     Active Substance: RISPERIDONE
     Dosage: 1 MILLIGRAM DAILY;  1?0?1?0
  9. CARVEDILOL. [Concomitant]
     Active Substance: CARVEDILOL
     Dosage: 3.125 MG, SCHEME

REACTIONS (11)
  - Hyperkalaemia [Unknown]
  - General physical health deterioration [Unknown]
  - Anaemia [Unknown]
  - Hyponatraemia [Unknown]
  - Bradycardia [Unknown]
  - Hypotension [Unknown]
  - Condition aggravated [Unknown]
  - Abdominal distension [Unknown]
  - Acute abdomen [Unknown]
  - Systemic infection [Unknown]
  - Oedema peripheral [Unknown]
